FAERS Safety Report 20378158 (Version 1)
Quarter: 2022Q1

REPORT INFORMATION
  Report Type: Report from Study
  Country: HU (occurrence: HU)
  Receive Date: 20220126
  Receipt Date: 20220126
  Transmission Date: 20220423
  Serious: Yes (Death, Hospitalization)
  Sender: FDA-Public Use
  Company Number: HU-JNJFOC-20220125138

PATIENT
  Age: 62 Year
  Sex: Male
  Weight: 80 kg

DRUGS (8)
  1. BOSENTAN [Suspect]
     Active Substance: BOSENTAN
     Indication: Pulmonary hypertension
     Route: 048
     Dates: start: 20190607, end: 20220110
  2. MICARDIS [Concomitant]
     Active Substance: TELMISARTAN
     Indication: Hypertension
     Dosage: 40 MG 1X DAILY ORAL
     Route: 048
     Dates: start: 20140725, end: 20220110
  3. POTASSIUM CHLORIDE [Concomitant]
     Active Substance: POTASSIUM CHLORIDE
     Indication: Mineral supplementation
     Dosage: 600 MG 1X 1200 MG ORAL
     Dates: start: 20220108, end: 20220110
  4. CORDARONE [Concomitant]
     Active Substance: AMIODARONE HYDROCHLORIDE
     Indication: Arrhythmia
     Dosage: 20 MG 1X DAILY ORAL
     Route: 048
     Dates: start: 20140725, end: 20220110
  5. WARFARIN [Concomitant]
     Active Substance: WARFARIN
     Indication: Anticoagulant therapy
     Dosage: 4-4-3 MG ALTERNATING ORAL
     Dates: start: 20140725, end: 20220110
  6. FUROSEMIDE [Concomitant]
     Active Substance: FUROSEMIDE
     Indication: Diuretic therapy
     Dosage: 40 MG 3X DAILY ORAL
     Dates: start: 20140725, end: 20220110
  7. ALLOPURINOL [Concomitant]
     Active Substance: ALLOPURINOL
     Indication: Gout
     Dosage: 100 MG 1X DAILY ORAL
     Dates: start: 20211008, end: 20220110
  8. OXYGEN [Concomitant]
     Active Substance: OXYGEN
     Dosage: 1,5 L/MIN 2 HOURS/DAY
     Dates: start: 20190607, end: 20220110

REACTIONS (1)
  - COVID-19 [Fatal]
